FAERS Safety Report 21932722 (Version 1)
Quarter: 2023Q1

REPORT INFORMATION
  Report Type: Spontaneous
  Country: BR (occurrence: BR)
  Receive Date: 20230131
  Receipt Date: 20230131
  Transmission Date: 20230418
  Serious: Yes (Other)
  Sender: FDA-Public Use
  Company Number: BR-ORGANON-O2301BRA002175

PATIENT
  Sex: Female
  Weight: 52 kg

DRUGS (1)
  1. ETONOGESTREL [Suspect]
     Active Substance: ETONOGESTREL
     Dosage: 1 IMPLANT
     Route: 059
     Dates: start: 202107

REACTIONS (11)
  - Blood loss anaemia [Unknown]
  - Anger [Unknown]
  - Migraine [Unknown]
  - Mood swings [Unknown]
  - Amenorrhoea [Recovered/Resolved]
  - Heavy menstrual bleeding [Not Recovered/Not Resolved]
  - Implant site bruising [Unknown]
  - Implant site scar [Unknown]
  - Complication of device insertion [Recovered/Resolved]
  - Complication of device removal [Recovered/Resolved]
  - Product quality issue [Unknown]

NARRATIVE: CASE EVENT DATE: 20210701
